FAERS Safety Report 14528423 (Version 23)
Quarter: 2020Q3

REPORT INFORMATION
  Report Type: Other
  Country: DE (occurrence: DE)
  Receive Date: 20180214
  Receipt Date: 20200910
  Transmission Date: 20201102
  Serious: Yes (Hospitalization, Other)
  Sender: FDA-Public Use
  Company Number: DE-ROCHE-1612261

PATIENT
  Age: 75 Year
  Sex: Male
  Weight: 81 kg

DRUGS (30)
  1. PROLIA [Suspect]
     Active Substance: DENOSUMAB
     Indication: OSTEOPOROSIS
     Route: 058
     Dates: start: 201405
  2. ROACTEMRA [Suspect]
     Active Substance: TOCILIZUMAB
     Route: 058
     Dates: start: 20180131
  3. ROACTEMRA [Suspect]
     Active Substance: TOCILIZUMAB
     Route: 058
     Dates: start: 202008
  4. QUETIAPIN [Suspect]
     Active Substance: QUETIAPINE
     Indication: PRODUCT USED FOR UNKNOWN INDICATION
     Route: 065
  5. ESCITALOPRAM [Concomitant]
     Active Substance: ESCITALOPRAM OXALATE
     Route: 048
  6. PANTOPRAZOLE [Concomitant]
     Active Substance: PANTOPRAZOLE
     Indication: PRODUCT USED FOR UNKNOWN INDICATION
  7. ROACTEMRA [Suspect]
     Active Substance: TOCILIZUMAB
     Route: 058
     Dates: end: 201506
  8. ROACTEMRA [Suspect]
     Active Substance: TOCILIZUMAB
     Indication: RHEUMATOID ARTHRITIS
     Route: 058
     Dates: start: 20140601, end: 201506
  9. ROACTEMRA [Suspect]
     Active Substance: TOCILIZUMAB
     Route: 058
     Dates: start: 201811
  10. ROACTEMRA [Suspect]
     Active Substance: TOCILIZUMAB
     Route: 058
     Dates: start: 20190227, end: 20190327
  11. COLECALCIFEROL [Suspect]
     Active Substance: CHOLECALCIFEROL
     Indication: OSTEOPOROSIS
     Route: 048
     Dates: start: 201204
  12. AMLODIPIN [Concomitant]
     Active Substance: AMLODIPINE BESYLATE
  13. CORTISONE ACETATE. [Concomitant]
     Active Substance: CORTISONE ACETATE
     Indication: PRODUCT USED FOR UNKNOWN INDICATION
     Route: 065
  14. ROACTEMRA [Suspect]
     Active Substance: TOCILIZUMAB
     Route: 058
     Dates: start: 20190328, end: 20190404
  15. ROACTEMRA [Suspect]
     Active Substance: TOCILIZUMAB
     Route: 058
     Dates: start: 201904
  16. ROACTEMRA [Suspect]
     Active Substance: TOCILIZUMAB
     Route: 058
  17. CLEXANE [Suspect]
     Active Substance: ENOXAPARIN SODIUM
     Indication: VENOUS THROMBOSIS LIMB
     Dosage: UNK
     Route: 065
     Dates: start: 201507
  18. ESCITALOPRAM [Concomitant]
     Active Substance: ESCITALOPRAM OXALATE
     Indication: PRODUCT USED FOR UNKNOWN INDICATION
     Route: 048
  19. ROACTEMRA [Suspect]
     Active Substance: TOCILIZUMAB
     Indication: VASCULITIS
     Route: 058
     Dates: start: 20150706, end: 20171025
  20. ROACTEMRA [Suspect]
     Active Substance: TOCILIZUMAB
     Route: 058
     Dates: start: 20180414
  21. ESCITALOPRAM [Concomitant]
     Active Substance: ESCITALOPRAM OXALATE
     Route: 048
  22. LISIHEXAL [Concomitant]
     Active Substance: LISINOPRIL
     Indication: PRODUCT USED FOR UNKNOWN INDICATION
  23. ROACTEMRA [Suspect]
     Active Substance: TOCILIZUMAB
     Indication: MYALGIA
     Route: 058
     Dates: start: 20180414
  24. ROACTEMRA [Suspect]
     Active Substance: TOCILIZUMAB
     Route: 058
     Dates: start: 201704, end: 20171025
  25. ROACTEMRA [Suspect]
     Active Substance: TOCILIZUMAB
     Route: 058
     Dates: start: 202005
  26. AMLODIPIN [Concomitant]
     Active Substance: AMLODIPINE BESYLATE
  27. ROACTEMRA [Suspect]
     Active Substance: TOCILIZUMAB
     Indication: GIANT CELL ARTERITIS
     Route: 058
     Dates: start: 20150607
  28. ROACTEMRA [Suspect]
     Active Substance: TOCILIZUMAB
     Route: 058
  29. NADROPARIN CALCIUM [Suspect]
     Active Substance: NADROPARIN CALCIUM
     Indication: VENOUS THROMBOSIS LIMB
     Dosage: UNK
     Route: 065
  30. FRAXIPARIN [Suspect]
     Active Substance: NADROPARIN CALCIUM
     Indication: VENOUS THROMBOSIS LIMB
     Route: 065
     Dates: start: 201507

REACTIONS (27)
  - Prostate cancer [Recovered/Resolved]
  - Leukopenia [Recovered/Resolved]
  - Erysipelas [Recovering/Resolving]
  - Angioedema [Recovered/Resolved]
  - Off label use [Unknown]
  - C-reactive protein increased [Recovered/Resolved]
  - Fall [Unknown]
  - Dysuria [Unknown]
  - Lymphoedema [Recovered/Resolved]
  - Impaired healing [Recovered/Resolved]
  - Suture rupture [Recovered/Resolved]
  - Depression [Not Recovered/Not Resolved]
  - Bronchitis [Recovered/Resolved]
  - Lymphocele [Recovered/Resolved]
  - Hyperaesthesia [Unknown]
  - Wound dehiscence [Recovered/Resolved]
  - Sleep disorder [Unknown]
  - Soft tissue disorder [Recovered/Resolved]
  - Autoimmune disorder [Unknown]
  - Product use in unapproved indication [Unknown]
  - Platelet count decreased [Unknown]
  - Sepsis [Recovering/Resolving]
  - Rash erythematous [Unknown]
  - Eye inflammation [Recovering/Resolving]
  - Inappropriate schedule of product administration [Unknown]
  - Venous thrombosis limb [Not Recovered/Not Resolved]
  - Acetabulum fracture [Recovering/Resolving]

NARRATIVE: CASE EVENT DATE: 201407
